FAERS Safety Report 9172381 (Version 3)
Quarter: 2013Q4

REPORT INFORMATION
  Report Type: Spontaneous
  Country: US (occurrence: US)
  Receive Date: 20130319
  Receipt Date: 20131119
  Transmission Date: 20140711
  Serious: Yes (Death)
  Sender: FDA-Public Use
  Company Number: US-B.I. PHARMACEUTICALS,INC./RIDGEFIELD-2013-BI-07009BP

PATIENT
  Sex: Female
  Weight: 67.13 kg

DRUGS (13)
  1. PRADAXA [Suspect]
     Indication: ATRIAL FIBRILLATION
     Dosage: 300 MG
     Route: 048
     Dates: start: 201111, end: 20120507
  2. COZAAR [Concomitant]
  3. XALATAN [Concomitant]
  4. TIMOPTIC [Concomitant]
  5. LANOXIN [Concomitant]
  6. CARDIZEM [Concomitant]
  7. LACTINEX [Concomitant]
  8. LEVAQUIN [Concomitant]
     Dosage: 750 MG
     Route: 048
  9. ROBITUSSIN [Concomitant]
  10. TYLENOL [Concomitant]
  11. ZOFRAN [Concomitant]
  12. XOPENEX [Concomitant]
  13. TRAZODONE [Concomitant]

REACTIONS (1)
  - Gastrointestinal haemorrhage [Fatal]
